FAERS Safety Report 20003217 (Version 1)
Quarter: 2021Q4

REPORT INFORMATION
  Report Type: Report from Study
  Country: IN (occurrence: IN)
  Receive Date: 20211027
  Receipt Date: 20211027
  Transmission Date: 20220303
  Serious: Yes (Other)
  Sender: FDA-Public Use
  Company Number: IN-NOVARTISPH-NVSC2020IN160065

PATIENT
  Sex: Female

DRUGS (14)
  1. SECUKINUMAB [Suspect]
     Active Substance: SECUKINUMAB
     Indication: Psoriatic arthropathy
     Dosage: 300 MG, QW
     Route: 058
  2. SECUKINUMAB [Suspect]
     Active Substance: SECUKINUMAB
     Indication: Psoriasis
     Dosage: 300 MG, QW
     Route: 058
     Dates: start: 20200528
  3. SECUKINUMAB [Suspect]
     Active Substance: SECUKINUMAB
     Dosage: 150 MG, QMO
     Route: 058
     Dates: start: 20200809
  4. SECUKINUMAB [Suspect]
     Active Substance: SECUKINUMAB
     Dosage: 150 MG, QMO
     Route: 058
     Dates: start: 20200912
  5. SECUKINUMAB [Suspect]
     Active Substance: SECUKINUMAB
     Dosage: 150 MG, QMO
     Route: 058
     Dates: start: 20201008
  6. SECUKINUMAB [Suspect]
     Active Substance: SECUKINUMAB
     Dosage: 150 MG, QMO
     Route: 058
     Dates: start: 20210823
  7. SECUKINUMAB [Suspect]
     Active Substance: SECUKINUMAB
     Dosage: 150 MG, QW
     Route: 058
  8. SECUKINUMAB [Suspect]
     Active Substance: SECUKINUMAB
     Dosage: 150 MG
     Route: 065
     Dates: start: 20210923
  9. METHOTREXATE SODIUM [Concomitant]
     Active Substance: METHOTREXATE SODIUM
     Indication: Product used for unknown indication
     Dosage: 10 MG, QW
     Route: 065
  10. MEDROL [Concomitant]
     Active Substance: METHYLPREDNISOLONE
     Indication: Product used for unknown indication
     Dosage: UNK
     Route: 065
  11. MECOBAL PLUS [Concomitant]
     Indication: Product used for unknown indication
     Dosage: UNK
     Route: 065
  12. VITAMIN D3 [Concomitant]
     Active Substance: CHOLECALCIFEROL
     Indication: Product used for unknown indication
     Dosage: UNK (SACHE)
     Route: 065
  13. PANTOCID [Concomitant]
     Indication: Product used for unknown indication
     Dosage: UNK
     Route: 065
  14. CYCLOSPORINE [Concomitant]
     Active Substance: CYCLOSPORINE
     Indication: Product used for unknown indication
     Dosage: 50 MG, BID
     Route: 065

REACTIONS (8)
  - Hypothyroidism [Unknown]
  - Pyrexia [Unknown]
  - Oral disorder [Unknown]
  - Underdose [Unknown]
  - Burning sensation [Unknown]
  - Pruritus [Unknown]
  - Pain [Unknown]
  - Blister [Unknown]
